FAERS Safety Report 18319416 (Version 2)
Quarter: 2020Q4

REPORT INFORMATION
  Report Type: Report from Study
  Country: BR (occurrence: BR)
  Receive Date: 20200928
  Receipt Date: 20201204
  Transmission Date: 20210113
  Serious: Yes (Other)
  Sender: FDA-Public Use
  Company Number: BR-BIOGEN-2020BI00927796

PATIENT
  Sex: Female

DRUGS (4)
  1. AVONEX PEN [Suspect]
     Active Substance: INTERFERON BETA-1A
  2. AVONEX PEN [Suspect]
     Active Substance: INTERFERON BETA-1A
  3. AVONEX PEN [Suspect]
     Active Substance: INTERFERON BETA-1A
     Indication: MULTIPLE SCLEROSIS
     Route: 030
     Dates: start: 2008, end: 2010
  4. AVONEX PEN [Suspect]
     Active Substance: INTERFERON BETA-1A

REACTIONS (2)
  - Maternal exposure during pregnancy [Recovered/Resolved]
  - Abortion spontaneous [Recovered/Resolved]

NARRATIVE: CASE EVENT DATE: 2010
